FAERS Safety Report 8266697-3 (Version None)
Quarter: 2012Q2

REPORT INFORMATION
  Report Type: 
  Country: None (occurrence: None)
  Receive Date: 20120409
  Receipt Date: 20120330
  Transmission Date: 20120825
  Serious: Yes (Other)
  Sender: FDA-Public Use
  Company Number: JP-BRISTOL-MYERS SQUIBB COMPANY-16458051

PATIENT
  Age: 27 Year
  Sex: Female

DRUGS (5)
  1. ZOLPIDEM [Concomitant]
     Dosage: TABLET
     Dates: start: 20120203
  2. ABILIFY [Suspect]
     Indication: SCHIZOPHRENIA
     Dosage: 16JAN12,17JAN-18JAN:6MGBID,19JAN-26JAN:9MGBID,27JAN-8FEB:18MGQD,9FEB-ONG:24MGQD
     Route: 048
     Dates: start: 20120116
  3. SEPAZON [Concomitant]
     Dosage: TABLETS
     Dates: start: 20120203
  4. GASMOTIN [Concomitant]
     Dosage: TABLETS
     Dates: start: 20120208
  5. MAGNESIUM SULFATE [Concomitant]
     Dosage: TABLETS
     Dates: start: 20100607

REACTIONS (1)
  - IMPULSIVE BEHAVIOUR [None]
